FAERS Safety Report 16925803 (Version 1)
Quarter: 2019Q4

REPORT INFORMATION
  Report Type: Spontaneous
  Country: IT (occurrence: IT)
  Receive Date: 20191016
  Receipt Date: 20191016
  Transmission Date: 20200122
  Serious: Yes (Life-Threatening, Hospitalization, Other)
  Sender: FDA-Public Use
  Company Number: IT-PFIZER INC-2019442930

PATIENT
  Age: 64 Year
  Sex: Male

DRUGS (1)
  1. GEMCITABINE HYDROCHLORIDE. [Suspect]
     Active Substance: GEMCITABINE HYDROCHLORIDE
     Indication: SOFT TISSUE SARCOMA
     Dosage: UNK, WEEKLY
     Dates: start: 201708, end: 2017

REACTIONS (12)
  - Atypical haemolytic uraemic syndrome [Recovered/Resolved]
  - Transient ischaemic attack [Recovered/Resolved]
  - Hypertension [Recovered/Resolved]
  - Acute kidney injury [Recovered/Resolved]
  - Generalised oedema [Recovered/Resolved]
  - Weight increased [Recovered/Resolved]
  - Blood lactate dehydrogenase increased [Recovered/Resolved]
  - Azotaemia [Recovered/Resolved]
  - Central nervous system lesion [Recovered/Resolved]
  - Thrombocytopenia [Recovered/Resolved]
  - Brain oedema [Recovered/Resolved]
  - Cerebral microangiopathy [Recovered/Resolved]

NARRATIVE: CASE EVENT DATE: 2017
